FAERS Safety Report 4453596-8 (Version None)
Quarter: 2004Q3

REPORT INFORMATION
  Report Type: 
  Country: None (occurrence: None)
  Receive Date: 20040920
  Receipt Date: 20040909
  Transmission Date: 20050211
  Serious: Yes (Hospitalization)
  Sender: FDA-Public Use
  Company Number: PHEH2004US09712

PATIENT
  Age: 72 Year
  Sex: Female

DRUGS (5)
  1. DIOVAN HCT [Suspect]
     Indication: HYPERTENSION
     Dosage: ONE TABLET DAILY
     Route: 048
     Dates: start: 20020101, end: 20040801
  2. ADVAIR DISKUS 100/50 [Concomitant]
     Indication: ASTHMA
  3. NEXIUM [Concomitant]
     Indication: GASTROOESOPHAGEAL REFLUX DISEASE
  4. DICLOFENAC SODIUM [Concomitant]
     Indication: GLAUCOMA
  5. AZOPT [Concomitant]
     Indication: GLAUCOMA
     Route: 047

REACTIONS (3)
  - POLYPECTOMY [None]
  - PRURITUS [None]
  - RECTAL POLYP [None]
